FAERS Safety Report 12252522 (Version 1)
Quarter: 2016Q2

REPORT INFORMATION
  Report Type: Spontaneous
  Country: US (occurrence: US)
  Receive Date: 20160411
  Receipt Date: 20160411
  Transmission Date: 20160815
  Serious: No
  Sender: FDA-Public Use
  Company Number: US-TEVA-641407USA

PATIENT
  Sex: Female

DRUGS (2)
  1. ESOMEPRAZOLE [Suspect]
     Active Substance: ESOMEPRAZOLE
     Route: 065
  2. NEXIUM [Suspect]
     Active Substance: ESOMEPRAZOLE MAGNESIUM
     Dosage: 40 MILLIGRAM DAILY;
     Route: 065
     Dates: end: 20160213

REACTIONS (8)
  - Dyspepsia [Unknown]
  - Product size issue [Unknown]
  - Diarrhoea [Unknown]
  - Drug ineffective [Unknown]
  - Hypophagia [Unknown]
  - Product substitution issue [Unknown]
  - Malaise [Unknown]
  - Depression [Unknown]

NARRATIVE: CASE EVENT DATE: 20160213
